FAERS Safety Report 6011874-5 (Version None)
Quarter: 2008Q4

REPORT INFORMATION
  Report Type: 
  Country: None (occurrence: None)
  Receive Date: 20081218
  Receipt Date: 20080924
  Transmission Date: 20090506
  Serious: No
  Sender: FDA-Public Use
  Company Number: CA-ASTRAZENECA-2008UW20222

PATIENT
  Age: 897 Month
  Sex: Male
  Weight: 109.3 kg

DRUGS (1)
  1. CRESTOR [Suspect]
     Indication: HYPERLIPIDAEMIA
     Route: 048
     Dates: start: 20080801

REACTIONS (5)
  - ASTHENIA [None]
  - BLOOD URINE PRESENT [None]
  - FATIGUE [None]
  - HEART RATE DECREASED [None]
  - MYALGIA [None]
